FAERS Safety Report 14742325 (Version 2)
Quarter: 2018Q2

REPORT INFORMATION
  Report Type: Spontaneous
  Country: CH (occurrence: CH)
  Receive Date: 20180410
  Receipt Date: 20180419
  Transmission Date: 20180711
  Serious: Yes (Hospitalization, Other)
  Sender: FDA-Public Use
  Company Number: CH-PFIZER INC-2018139034

PATIENT
  Age: 84 Year
  Sex: Female
  Weight: 86 kg

DRUGS (17)
  1. CYMBALTA [Concomitant]
     Active Substance: DULOXETINE HYDROCHLORIDE
     Dosage: 60MG 1X/DAY (1-0-0), LONG-TERM THERAPY
  2. PARAGOL N [Concomitant]
     Dosage: 20ML, ONCE DAILY
  3. TOREM /01036501/ [Interacting]
     Active Substance: TORSEMIDE
     Dosage: 20MG, ONCE DAILY
     Dates: end: 20180317
  4. TOREM /01036501/ [Interacting]
     Active Substance: TORSEMIDE
     Dosage: 10 MG, UNK
     Dates: start: 20180321
  5. XARELTO [Concomitant]
     Active Substance: RIVAROXABAN
     Dosage: 20MG 1X/DAY, LONG-TERM THERAPY, PAUSE FROM 17-19MAR2018 DUE TO RENAL INSUFFICIENCY.
  6. COVERSUM N [Interacting]
     Active Substance: PERINDOPRIL
     Dosage: 5MG, ONCE DAILY BEFORE: JUN2017 TRIATEC, JUL/2017 - NOV2017 ATACAND
     Dates: start: 201711, end: 20180319
  7. TARGIN [Concomitant]
     Active Substance: NALOXONE HYDROCHLORIDE\OXYCODONE HYDROCHLORIDE
     Dosage: 10MG 2X/DAY (1-0-1)
  8. VITAMIN D3 STREULI [Concomitant]
     Active Substance: CHOLECALCIFEROL
     Dosage: 10 GTT 1X/DAY
  9. METOLAZON [Interacting]
     Active Substance: METOLAZONE
     Dosage: 5MG, ONCE DAILY
     Dates: start: 201711, end: 20180317
  10. METO ZEROK [Concomitant]
     Active Substance: METOPROLOL SUCCINATE
     Dosage: 50MG 2X/DAY (1-0-1), LONG-TERM THERAPY
  11. PANTOPRAZOL [Concomitant]
     Active Substance: PANTOPRAZOLE SODIUM
     Dosage: 40MG 1X/DAY (1-0-0), LONG-TERM THERAPY
  12. FLECTORTISSUGELEP [Concomitant]
     Active Substance: DICLOFENAC EPOLAMINE
     Dosage: 1 DF, ONCE DAILY
  13. ALDACTONE [Suspect]
     Active Substance: SPIRONOLACTONE
     Dosage: 25MG, ONCE DAILY
     Dates: start: 201711, end: 20180317
  14. REMERON [Concomitant]
     Active Substance: MIRTAZAPINE
     Dosage: 30MG 1X/DAY (0-0-0-1), LONG-TERM THERAPY
  15. EXCIPIAL /05995701/ [Concomitant]
     Dosage: 1 DF
  16. COVERSUM N [Interacting]
     Active Substance: PERINDOPRIL
     Dosage: 5 MG, ONCE A DAY
     Dates: start: 20180322
  17. OXYNORM [Concomitant]
     Active Substance: OXYCODONE HYDROCHLORIDE
     Dosage: 5MG, MAX. 1-1-1-1

REACTIONS (5)
  - Drug interaction [Recovered/Resolved]
  - Contraindicated product administered [Recovered/Resolved]
  - Hyperkalaemia [Recovered/Resolved]
  - Acute kidney injury [Recovered/Resolved]
  - Gouty arthritis [Recovering/Resolving]

NARRATIVE: CASE EVENT DATE: 201803
